FAERS Safety Report 10502766 (Version 1)
Quarter: 2014Q4

REPORT INFORMATION
  Report Type: Spontaneous
  Country: BR (occurrence: BR)
  Receive Date: 20141007
  Receipt Date: 20141007
  Transmission Date: 20150528
  Serious: Yes (Other)
  Sender: FDA-Public Use
  Company Number: BR-SYMPLMED PHARMACEUTICALS-2014SYM00108

PATIENT
  Age: 64 Year
  Sex: Female

DRUGS (2)
  1. ACEON [Suspect]
     Active Substance: PERINDOPRIL ERBUMINE
     Indication: HYPERTENSION
     Dosage: 10 MG, QD
     Dates: start: 20140919, end: 20140919
  2. ACEON [Suspect]
     Active Substance: PERINDOPRIL ERBUMINE
     Dosage: 5 MG, QD
     Dates: start: 20140920, end: 20140920

REACTIONS (4)
  - Dizziness [Recovered/Resolved]
  - Blood pressure decreased [Recovered/Resolved]
  - Malaise [Recovered/Resolved]
  - Vertigo [Recovered/Resolved]

NARRATIVE: CASE EVENT DATE: 20140919
